FAERS Safety Report 7524924-1 (Version None)
Quarter: 2011Q2

REPORT INFORMATION
  Report Type: 
  Country: None (occurrence: None)
  Receive Date: 20110606
  Receipt Date: 20110520
  Transmission Date: 20111010
  Serious: No
  Sender: FDA-Public Use
  Company Number: US-B.I. PHARMACEUTICALS,INC./RIDGEFIELD-2011-BP-13578BP

PATIENT
  Age: 51 Year
  Sex: Female

DRUGS (4)
  1. SPIRIVA [Suspect]
     Indication: CHRONIC OBSTRUCTIVE PULMONARY DISEASE
     Dosage: 18 MCG
     Route: 055
     Dates: start: 20110301
  2. XANAX [Concomitant]
     Indication: ANXIETY
  3. LORTAB [Concomitant]
     Indication: HYPERTENSION
  4. PAXIL [Concomitant]
     Indication: DEPRESSION
     Dates: start: 20060101

REACTIONS (4)
  - PARAESTHESIA ORAL [None]
  - PARAESTHESIA [None]
  - HYPOAESTHESIA [None]
  - HYPOAESTHESIA ORAL [None]
